FAERS Safety Report 9548587 (Version 1)
Quarter: 2013Q3

REPORT INFORMATION
  Report Type: Spontaneous
  Country: ZA (occurrence: ZA)
  Receive Date: 20130924
  Receipt Date: 20130924
  Transmission Date: 20140515
  Serious: Yes (Other)
  Sender: FDA-Public Use
  Company Number: ZA-AMGEN-ZAFSP2013067022

PATIENT
  Age: 32 Year
  Sex: Female

DRUGS (6)
  1. ENBREL [Suspect]
     Indication: PRODUCT USED FOR UNKNOWN INDICATION
     Dosage: 50 MG, WEEKLY (ONCE A WEEK)
     Route: 065
     Dates: start: 201302
  2. METHOTREXATE [Concomitant]
     Dosage: UNK
  3. FOLIC ACID [Concomitant]
     Dosage: UNK
  4. ARCOXIA [Concomitant]
     Dosage: UNK
  5. TRAMACET [Concomitant]
     Dosage: UNK
  6. FEMODENE [Concomitant]
     Dosage: UNK

REACTIONS (1)
  - Chest pain [Not Recovered/Not Resolved]
